FAERS Safety Report 16569100 (Version 1)
Quarter: 2019Q3

REPORT INFORMATION
  Report Type: Spontaneous
  Country: ES (occurrence: ES)
  Receive Date: 20190713
  Receipt Date: 20190713
  Transmission Date: 20191004
  Serious: Yes (Hospitalization)
  Sender: FDA-Public Use
  Company Number: ES-CANTON LABORATORIES, LLC-2070793

PATIENT
  Sex: Female

DRUGS (1)
  1. NAPROSYN [Suspect]
     Active Substance: NAPROXEN
     Indication: OSTEOARTHRITIS
     Route: 048
     Dates: start: 201601, end: 20170122

REACTIONS (2)
  - Gastric perforation [Recovered/Resolved with Sequelae]
  - Chemical peritonitis [Recovered/Resolved with Sequelae]

NARRATIVE: CASE EVENT DATE: 20170122
